FAERS Safety Report 24965960 (Version 6)
Quarter: 2025Q2

REPORT INFORMATION
  Report Type: Spontaneous
  Country: GB (occurrence: GB)
  Receive Date: 20250213
  Receipt Date: 20250423
  Transmission Date: 20250717
  Serious: No
  Sender: PFIZER
  Company Number: GB-PFIZER INC-PV202500015184

PATIENT
  Age: 10 Year
  Sex: Female

DRUGS (1)
  1. GENOTROPIN [Suspect]
     Active Substance: SOMATROPIN
     Indication: Hypopituitarism
     Dosage: 0.8 MG, 1X/DAY
     Route: 058

REACTIONS (2)
  - Device power source issue [Unknown]
  - Drug dose omission by device [Unknown]

NARRATIVE: CASE EVENT DATE: 20250201
